FAERS Safety Report 17550388 (Version 3)
Quarter: 2020Q2

REPORT INFORMATION
  Report Type: Report from Study
  Country: US (occurrence: US)
  Receive Date: 20200317
  Receipt Date: 20200414
  Transmission Date: 20200713
  Serious: Yes (Hospitalization)
  Sender: FDA-Public Use
  Company Number: US-EISAI MEDICAL RESEARCH-EC-2019-067760

PATIENT
  Age: 76 Year
  Sex: Female

DRUGS (8)
  1. KEYTRUDA [Suspect]
     Active Substance: PEMBROLIZUMAB
     Indication: ENDOMETRIAL ADENOCARCINOMA
     Route: 041
     Dates: start: 201912, end: 20200219
  2. LENVIMA [Suspect]
     Active Substance: LENVATINIB
     Indication: ENDOMETRIAL ADENOCARCINOMA
     Route: 048
     Dates: start: 20191120, end: 20191223
  3. AMLODIPINE [Concomitant]
     Active Substance: AMLODIPINE BESYLATE
  4. KRILL OIL [Concomitant]
     Active Substance: DIETARY SUPPLEMENT\KRILL OIL
  5. BACTRIM [Concomitant]
     Active Substance: SULFAMETHOXAZOLE\TRIMETHOPRIM
  6. COENZYME Q10 [Concomitant]
     Active Substance: UBIDECARENONE
  7. LENVIMA [Suspect]
     Active Substance: LENVATINIB
     Route: 048
     Dates: start: 20191226, end: 20200310
  8. ATORVASTATIN [Concomitant]
     Active Substance: ATORVASTATIN

REACTIONS (21)
  - Urinary tract infection [Recovering/Resolving]
  - Gait disturbance [Unknown]
  - Vomiting [Unknown]
  - Somnolence [Unknown]
  - Nausea [Recovering/Resolving]
  - Dehydration [Unknown]
  - Asthenia [Not Recovered/Not Resolved]
  - Back pain [Recovered/Resolved]
  - Hypotension [Unknown]
  - Dyspnoea [Recovered/Resolved]
  - Thyroid function test abnormal [Unknown]
  - Weight decreased [Recovering/Resolving]
  - Fatigue [Recovering/Resolving]
  - Hypertension [Unknown]
  - Dry mouth [Unknown]
  - Vaginal discharge [Recovered/Resolved]
  - Platelet count decreased [Unknown]
  - Epistaxis [Unknown]
  - Diarrhoea [Unknown]
  - Decreased appetite [Recovering/Resolving]
  - Wheelchair user [Unknown]

NARRATIVE: CASE EVENT DATE: 201912
